FAERS Safety Report 10243830 (Version 1)
Quarter: 2014Q2

REPORT INFORMATION
  Report Type: Spontaneous
  Country: US (occurrence: US)
  Receive Date: 20140618
  Receipt Date: 20140618
  Transmission Date: 20141212
  Serious: No
  Sender: FDA-Public Use
  Company Number: US-JNJFOC-20140603434

PATIENT
  Age: 46 Year
  Sex: Female
  Weight: 60.33 kg

DRUGS (2)
  1. SANDOZ FENTANYL TRANSDERMAL SYSTEM [Suspect]
     Indication: PAIN
     Route: 062
     Dates: start: 20140509
  2. PLAQUENIL [Concomitant]
     Indication: SJOGREN^S SYNDROME
     Route: 048

REACTIONS (9)
  - Poor quality drug administered [Recovered/Resolved]
  - Wrong technique in drug usage process [Recovered/Resolved]
  - Drug prescribing error [Unknown]
  - Dyspnoea [Recovered/Resolved]
  - Pain [Not Recovered/Not Resolved]
  - Therapeutic response decreased [Not Recovered/Not Resolved]
  - Palpitations [Not Recovered/Not Resolved]
  - Chest pain [Not Recovered/Not Resolved]
  - Product quality issue [Unknown]
